FAERS Safety Report 25455841 (Version 1)
Quarter: 2025Q2

REPORT INFORMATION
  Report Type: Report from Study
  Country: US (occurrence: US)
  Receive Date: 20250619
  Receipt Date: 20250619
  Transmission Date: 20250716
  Serious: No
  Sender: ACADIA PHARMACEUTICALS
  Company Number: US-ACADIA PHARMACEUTICALS INC.-ACA-2025-PIM-007222

PATIENT
  Age: 86 Year
  Sex: Male

DRUGS (11)
  1. NUPLAZID [Suspect]
     Active Substance: PIMAVANSERIN TARTRATE
     Indication: Parkinson^s disease
     Dosage: 34 MILLIGRAM, QD
     Route: 048
     Dates: start: 20250521
  2. RYTARY [Concomitant]
     Active Substance: CARBIDOPA\LEVODOPA
  3. CRESTOR [Concomitant]
     Active Substance: ROSUVASTATIN CALCIUM
  4. ALLOPURINOL [Concomitant]
     Active Substance: ALLOPURINOL
  5. ASPIRIN [Concomitant]
     Active Substance: ASPIRIN
  6. MIDODRINE [Concomitant]
     Active Substance: MIDODRINE
  7. NIACIN [Concomitant]
     Active Substance: NIACIN
  8. GABAPENTIN [Concomitant]
     Active Substance: GABAPENTIN
  9. TOLTERODINE [Concomitant]
     Active Substance: TOLTERODINE
  10. FINASTERIDE [Concomitant]
     Active Substance: FINASTERIDE
  11. VITAMIN D3 [Concomitant]
     Active Substance: CHOLECALCIFEROL

REACTIONS (3)
  - Diarrhoea [Unknown]
  - Faeces hard [Unknown]
  - Constipation [Unknown]

NARRATIVE: CASE EVENT DATE: 20250528
